FAERS Safety Report 21464766 (Version 2)
Quarter: 2022Q4

REPORT INFORMATION
  Report Type: Report from Study
  Country: US (occurrence: US)
  Receive Date: 20221017
  Receipt Date: 20221122
  Transmission Date: 20230112
  Serious: No
  Sender: FDA-Public Use
  Company Number: US-ABBVIE-4146274

PATIENT
  Sex: Female

DRUGS (3)
  1. HUMIRA [Suspect]
     Active Substance: ADALIMUMAB
     Indication: Ankylosing spondylitis
     Route: 058
  2. DICLOFENAC [Concomitant]
     Active Substance: DICLOFENAC
     Indication: Osteoporosis
  3. GABAPENTIN [Concomitant]
     Active Substance: GABAPENTIN
     Indication: Osteoporosis

REACTIONS (7)
  - Drug ineffective [Unknown]
  - Alopecia [Not Recovered/Not Resolved]
  - Ankylosing spondylitis [Unknown]
  - Pain [Unknown]
  - Arthritis [Recovered/Resolved]
  - COVID-19 [Recovered/Resolved]
  - Pruritus [Not Recovered/Not Resolved]

NARRATIVE: CASE EVENT DATE: 20220101
